FAERS Safety Report 23636838 (Version 1)
Quarter: 2024Q1

REPORT INFORMATION
  Report Type: Spontaneous
  Country: BR (occurrence: BR)
  Receive Date: 20240315
  Receipt Date: 20240315
  Transmission Date: 20240410
  Serious: Yes (Death, Other)
  Sender: FDA-Public Use
  Company Number: BR-DSJP-DSE-2024-111560AA

PATIENT
  Age: 37 Year
  Sex: Male

DRUGS (1)
  1. ENHERTU [Suspect]
     Active Substance: FAM-TRASTUZUMAB DERUXTECAN-NXKI
     Indication: HER2 mutant non-small cell lung cancer
     Dosage: C1 T-DXD (INITIALLY 6.4 MG/KG AS PER THE DL-01 TRIAL).
     Route: 065
     Dates: start: 20220729

REACTIONS (3)
  - Death [Fatal]
  - Respiratory tract infection [Unknown]
  - Disease progression [Unknown]

NARRATIVE: CASE EVENT DATE: 20230101
